FAERS Safety Report 8335502-9 (Version None)
Quarter: 2012Q2

REPORT INFORMATION
  Report Type: 
  Country: None (occurrence: None)
  Receive Date: 20120503
  Receipt Date: 20120423
  Transmission Date: 20120825
  Serious: Yes (Other)
  Sender: FDA-Public Use
  Company Number: US-BAXTER-2012BAX003640

PATIENT
  Sex: Female

DRUGS (1)
  1. ARALAST NP [Suspect]
     Route: 042

REACTIONS (2)
  - CARDIAC ARREST [None]
  - DRUG ADMINISTRATION ERROR [None]
